FAERS Safety Report 8301996-8 (Version None)
Quarter: 2012Q2

REPORT INFORMATION
  Report Type: 
  Country: None (occurrence: None)
  Receive Date: 20120402
  Receipt Date: 20120323
  Transmission Date: 20120825
  Serious: Yes (Other)
  Sender: FDA-Public Use
  Company Number: 2012031736

PATIENT
  Age: 72 Year
  Sex: Male
  Weight: 80.7403 kg

DRUGS (19)
  1. ASTELIN (DIPROPHYLLINE) [Concomitant]
  2. ACETAMINOPHEN [Concomitant]
  3. PRIVIGEN [Suspect]
  4. TOPROL-XL [Concomitant]
  5. SODIUM CHLORIDE 0.9% [Concomitant]
  6. VITAMIN D [Concomitant]
  7. IPRATROPIUM BROMIDE [Concomitant]
  8. ASPIRIN [Concomitant]
  9. VITAMIN B COMPLEX (B-KOMPLEX) [Concomitant]
  10. SELENIUM (SELENIUM) [Concomitant]
  11. HEPARIN [Concomitant]
  12. NIASPAN [Concomitant]
  13. FOLIC ACID [Concomitant]
  14. FISH OIL (FISH OIL) [Concomitant]
  15. PRIVIGEN [Suspect]
     Indication: CHRONIC INFLAMMATORY DEMYELINATING POLYRADICULONEUROPATHY
     Dosage: SEE IMAGE
     Route: 042
     Dates: start: 20120309, end: 20120309
  16. PRIVIGEN [Suspect]
     Indication: CHRONIC INFLAMMATORY DEMYELINATING POLYRADICULONEUROPATHY
     Dosage: SEE IMAGE
     Route: 042
     Dates: start: 20120309, end: 20120309
  17. CENTRUM (CENTRUM /00554501/) [Concomitant]
  18. LISINOPRIL (LIISNOPRIL) [Concomitant]
  19. ASCORBIC ACID [Concomitant]

REACTIONS (3)
  - BLOOD PRESSURE INCREASED [None]
  - OFF LABEL USE [None]
  - DRUG INEFFECTIVE [None]
